FAERS Safety Report 22071275 (Version 1)
Quarter: 2023Q1

REPORT INFORMATION
  Report Type: Spontaneous
  Country: GB (occurrence: GB)
  Receive Date: 20230307
  Receipt Date: 20230307
  Transmission Date: 20230417
  Serious: Yes (Life-Threatening, Hospitalization)
  Sender: FDA-Public Use
  Company Number: GB-MHRA-MED-202302281705268940-RQVYD

PATIENT
  Age: 62 Year
  Sex: Male
  Weight: 272 kg

DRUGS (1)
  1. TRULICITY [Suspect]
     Active Substance: DULAGLUTIDE
     Indication: Weight decreased
     Dosage: 0.75 MG, WEEKLY (1/W)
     Route: 065
     Dates: end: 20230222

REACTIONS (4)
  - Balance disorder [Recovering/Resolving]
  - Confusional state [Recovered/Resolved]
  - Malaise [Recovering/Resolving]
  - Off label use [Unknown]

NARRATIVE: CASE EVENT DATE: 20230221
